FAERS Safety Report 24203081 (Version 1)
Quarter: 2024Q3

REPORT INFORMATION
  Report Type: Report from Study
  Country: US (occurrence: None)
  Receive Date: 20240813
  Receipt Date: 20240813
  Transmission Date: 20241017
  Serious: Yes (Other)
  Sender: ASTRAZENECA
  Company Number: 2022A287717

PATIENT

DRUGS (2)
  1. DALIRESP [Suspect]
     Active Substance: ROFLUMILAST
     Dosage: 500.0UG UNKNOWN
     Route: 048
  2. DALIRESP [Suspect]
     Active Substance: ROFLUMILAST
     Dosage: 250.0UG UNKNOWN
     Route: 048

REACTIONS (1)
  - Drug intolerance [Unknown]
